FAERS Safety Report 20291070 (Version 4)
Quarter: 2022Q1

REPORT INFORMATION
  Report Type: Spontaneous
  Country: US (occurrence: US)
  Receive Date: 20220104
  Receipt Date: 20220303
  Transmission Date: 20220423
  Serious: No
  Sender: FDA-Public Use
  Company Number: US-BIOVITRUM-2021US13003

PATIENT
  Age: 37 Year
  Sex: Female

DRUGS (2)
  1. KINERET [Suspect]
     Active Substance: ANAKINRA
     Indication: Pyrexia
     Route: 058
     Dates: start: 20211125
  2. COLCHICINE QOD [Concomitant]

REACTIONS (11)
  - COVID-19 [Recovering/Resolving]
  - Dyspnoea exertional [Unknown]
  - Pyrexia [Recovering/Resolving]
  - Rhinorrhoea [Unknown]
  - Cough [Unknown]
  - Sneezing [Unknown]
  - Inflammation [Unknown]
  - Immune system disorder [Unknown]
  - Injection site pruritus [Recovered/Resolved]
  - Product dose omission issue [Unknown]
  - Off label use [Not Recovered/Not Resolved]

NARRATIVE: CASE EVENT DATE: 20211125
